FAERS Safety Report 5973908-3 (Version None)
Quarter: 2008Q4

REPORT INFORMATION
  Report Type: 
  Country: None (occurrence: None)
  Receive Date: 20081125
  Receipt Date: 20081117
  Transmission Date: 20090506
  Serious: Yes (Death)
  Sender: FDA-Public Use
  Company Number: VISP-NO-0810S-0486

PATIENT
  Age: 75 Year
  Sex: Female

DRUGS (2)
  1. VISIPAQUE [Suspect]
     Indication: HEPATIC CIRRHOSIS
     Dosage: 100 ML, SINGLE DOSE,  I.V.
     Route: 042
     Dates: start: 20081001, end: 20081001
  2. VISIPAQUE [Suspect]
     Indication: METASTASES TO PERITONEUM
     Dosage: 100 ML, SINGLE DOSE,  I.V.
     Route: 042
     Dates: start: 20081001, end: 20081001

REACTIONS (9)
  - ANAPHYLACTOID SHOCK [None]
  - ARTERIOSCLEROSIS CORONARY ARTERY [None]
  - CARDIAC ARREST [None]
  - CYANOSIS [None]
  - PULMONARY CONGESTION [None]
  - PULMONARY OEDEMA [None]
  - RENAL HAEMORRHAGE [None]
  - SUDDEN DEATH [None]
  - TRYPTASE INCREASED [None]
